FAERS Safety Report 8935686 (Version 2)
Quarter: 2013Q2

REPORT INFORMATION
  Report Type: Spontaneous
  Country: TW (occurrence: TW)
  Receive Date: 20121130
  Receipt Date: 20130408
  Transmission Date: 20140414
  Serious: Yes (Other)
  Sender: FDA-Public Use
  Company Number: PHHY2012TW107212

PATIENT
  Age: 14 Year
  Sex: Male

DRUGS (3)
  1. CARBAMAZEPINE [Suspect]
     Indication: CONVULSION
     Route: 048
  2. CLONAZEPAM [Suspect]
     Indication: CONVULSION
     Route: 048
  3. PHENYTOIN [Concomitant]
     Indication: CONVULSION
     Route: 042

REACTIONS (23)
  - Thrombocytopenia [Unknown]
  - Lymphocytosis [Unknown]
  - Transaminases increased [Unknown]
  - Hypersensitivity [Unknown]
  - Myocarditis [Unknown]
  - Cardiomyopathy [Unknown]
  - Bradycardia [Unknown]
  - Hypotension [Unknown]
  - Atrioventricular block [Unknown]
  - Cardiac enzymes increased [Unknown]
  - Left ventricular dysfunction [Unknown]
  - Blood pressure abnormal [Unknown]
  - Epilepsy [Unknown]
  - Loss of consciousness [Unknown]
  - Drug reaction with eosinophilia and systemic symptoms [Unknown]
  - Pyrexia [Unknown]
  - Rash erythematous [Unknown]
  - Rash pruritic [Unknown]
  - Papule [Unknown]
  - Local swelling [Unknown]
  - Lymphadenopathy [Unknown]
  - Oedema [Unknown]
  - Leukopenia [Unknown]
